FAERS Safety Report 8599904-8 (Version None)
Quarter: 2012Q3

REPORT INFORMATION
  Report Type: 
  Country: None (occurrence: None)
  Receive Date: 20120816
  Receipt Date: 20120622
  Transmission Date: 20120928
  Serious: No
  Sender: FDA-Public Use
  Company Number: US-AMGEN-USASP2012039012

PATIENT
  Age: 66 Year
  Sex: Male
  Weight: 103 kg

DRUGS (3)
  1. NPLATE [Suspect]
     Indication: IDIOPATHIC THROMBOCYTOPENIC PURPURA
     Dosage: 100 MUG, QWK
     Dates: start: 20110401, end: 20111201
  2. NPLATE [Suspect]
     Dosage: 100 MUG, UNK
     Dates: start: 20111201, end: 20120501
  3. EXCEDRIN (MIGRAINE) [Concomitant]

REACTIONS (3)
  - HEADACHE [None]
  - PLATELET COUNT DECREASED [None]
  - ABDOMINAL PAIN [None]
